FAERS Safety Report 4411086-2 (Version None)
Quarter: 2004Q3

REPORT INFORMATION
  Report Type: 
  Country: None (occurrence: None)
  Receive Date: 20040729
  Receipt Date: 20040719
  Transmission Date: 20050211
  Serious: Yes (Hospitalization)
  Sender: FDA-Public Use
  Company Number: PHRM2004FR02360

PATIENT
  Age: 65 Year
  Sex: Female
  Weight: 85 kg

DRUGS (4)
  1. MELLERIL [Suspect]
     Indication: DEMENTIA ALZHEIMER'S TYPE
     Dosage: 40 MG, TID
     Route: 048
     Dates: end: 20040506
  2. LOXAPAC [Suspect]
     Indication: DEMENTIA ALZHEIMER'S TYPE
     Dosage: 25 MG, TID
     Route: 048
     Dates: start: 20040101, end: 20040506
  3. XANAX [Suspect]
     Indication: DEMENTIA ALZHEIMER'S TYPE
     Dosage: .25 MG, TID
     Route: 048
     Dates: end: 20040506
  4. GARDENAL [Suspect]
     Indication: EPILEPSY
     Dosage: 100 MG, BID
     Route: 048
     Dates: end: 20040506

REACTIONS (7)
  - CHEST X-RAY ABNORMAL [None]
  - DEPRESSED LEVEL OF CONSCIOUSNESS [None]
  - HYPOTHERMIA [None]
  - IATROGENIC INJURY [None]
  - LEUKOPENIA [None]
  - SEPSIS [None]
  - SOMNOLENCE [None]
